FAERS Safety Report 23706217 (Version 1)
Quarter: 2024Q2

REPORT INFORMATION
  Report Type: Spontaneous
  Country: US (occurrence: None)
  Receive Date: 20240403
  Receipt Date: 20240403
  Transmission Date: 20240716
  Serious: No
  Sender: FDA-Public Use
  Company Number: None

PATIENT
  Sex: Female

DRUGS (3)
  1. KESIMPTA [Suspect]
     Active Substance: OFATUMUMAB
     Indication: Multiple sclerosis
     Dosage: 20MG ONCE A MONTH UNDER THE SKIN
     Route: 058
     Dates: start: 202306
  2. AZITHROMYCIN [Concomitant]
  3. AMOXICILLIN/CLAVULANATE POTASSIUM [Concomitant]

REACTIONS (5)
  - Pneumonia [None]
  - Fatigue [None]
  - Ear pain [None]
  - Neck pain [None]
  - Ear discomfort [None]
